FAERS Safety Report 15857953 (Version 1)
Quarter: 2019Q1

REPORT INFORMATION
  Report Type: Spontaneous
  Country: IT (occurrence: IT)
  Receive Date: 20190123
  Receipt Date: 20190123
  Transmission Date: 20190417
  Serious: Yes (Other)
  Sender: FDA-Public Use
  Company Number: IT-STALLERGENES SAS-2061619

PATIENT
  Age: 10 Year
  Sex: Female
  Weight: 31 kg

DRUGS (1)
  1. ORALAIR [Suspect]
     Active Substance: ANTHOXANTHUM ODORATUM POLLEN\DACTYLIS GLOMERATA POLLEN\LOLIUM PERENNE POLLEN\PHLEUM PRATENSE POLLEN\POA PRATENSIS POLLEN
     Indication: SEASONAL ALLERGY
     Route: 060
     Dates: start: 20181203, end: 20181226

REACTIONS (2)
  - Aphthous ulcer [Recovering/Resolving]
  - Tongue ulceration [Recovering/Resolving]

NARRATIVE: CASE EVENT DATE: 20181226
